FAERS Safety Report 8293438-6 (Version None)
Quarter: 2012Q2

REPORT INFORMATION
  Report Type: 
  Country: None (occurrence: None)
  Receive Date: 20120417
  Receipt Date: 20120416
  Transmission Date: 20120825
  Serious: Yes (Other)
  Sender: FDA-Public Use
  Company Number: FR-MERCK-1110USA03293

PATIENT
  Age: 48 Year
  Sex: Female

DRUGS (17)
  1. IMOVANE [Suspect]
     Route: 048
     Dates: start: 20110826
  2. VALACYCLOVIR HYDROCHLORIDE [Suspect]
     Route: 048
     Dates: start: 20110820
  3. DEXAMETHASONE [Suspect]
     Route: 048
     Dates: start: 20110903, end: 20110904
  4. EMEND [Suspect]
     Route: 048
     Dates: start: 20110828
  5. VINCRISTINE SULFATE [Suspect]
     Indication: ACUTE LYMPHOCYTIC LEUKAEMIA
     Route: 041
     Dates: start: 20110827, end: 20110903
  6. OMEPRAZOLE [Suspect]
     Route: 048
     Dates: start: 20110829
  7. VANCOMYCIN [Suspect]
     Route: 041
     Dates: start: 20110902, end: 20110904
  8. VANCOMYCIN [Suspect]
     Route: 041
     Dates: start: 20110905, end: 20110909
  9. ESCITALOPRAM [Concomitant]
     Indication: DEPRESSION
     Route: 048
     Dates: end: 20110910
  10. AMBISOME [Suspect]
     Indication: ANTIFUNGAL PROPHYLAXIS
     Route: 041
     Dates: start: 20110903, end: 20110909
  11. GAVISCON ANTACID TABLETS [Concomitant]
     Route: 048
     Dates: start: 20110829, end: 20110906
  12. GLEEVEC [Suspect]
     Indication: ACUTE LYMPHOCYTIC LEUKAEMIA
     Route: 048
     Dates: start: 20110827
  13. EMEND [Suspect]
     Indication: PROPHYLAXIS OF NAUSEA AND VOMITING
     Route: 048
     Dates: start: 20110827, end: 20110827
  14. LUTENYL [Concomitant]
     Route: 048
  15. ALUMINUM HYDROXIDE AND MAGNESIUM TRISILICATE [Concomitant]
     Route: 048
     Dates: start: 20110904
  16. PIPERACILLIN AND TAZOBACTAM [Suspect]
     Route: 041
     Dates: start: 20110902
  17. DEXAMETHASONE [Suspect]
     Indication: ACUTE LYMPHOCYTIC LEUKAEMIA
     Route: 048
     Dates: start: 20110827, end: 20110828

REACTIONS (1)
  - RENAL FAILURE [None]
